FAERS Safety Report 10149624 (Version 3)
Quarter: 2014Q2

REPORT INFORMATION
  Report Type: Spontaneous
  Country: US (occurrence: US)
  Receive Date: 20140502
  Receipt Date: 20140609
  Transmission Date: 20141212
  Serious: No
  Sender: FDA-Public Use
  Company Number: US-PFIZER INC-2014117587

PATIENT
  Age: 83 Year
  Sex: Female

DRUGS (9)
  1. XALKORI [Suspect]
     Indication: LUNG NEOPLASM MALIGNANT
     Dosage: 250 MG, UNK
     Dates: start: 20140408
  2. B-12 [Concomitant]
     Dosage: UNK
  3. CALCIUM + VIT D [Concomitant]
     Dosage: UNK
  4. CITALOPRAM HYDROBROMIDE [Concomitant]
     Dosage: UNK
  5. FERROUS SULFATE [Concomitant]
     Dosage: UNK
  6. MIRTAZAPINE [Concomitant]
     Dosage: UNK
  7. TERAZOSIN HCL [Concomitant]
     Dosage: UNK
  8. VITAMIN D3 [Concomitant]
     Dosage: UNK
  9. COD LIVER OIL [Concomitant]
     Dosage: UNK

REACTIONS (2)
  - Nausea [Unknown]
  - Chromaturia [Unknown]
